FAERS Safety Report 7532319-X (Version None)
Quarter: 2011Q2

REPORT INFORMATION
  Report Type: 
  Country: None (occurrence: None)
  Receive Date: 20110608
  Receipt Date: 20110603
  Transmission Date: 20111010
  Serious: Yes (Hospitalization, Disabling, Other)
  Sender: FDA-Public Use
  Company Number: US-MERCK-1101USA00245

PATIENT
  Age: 57 Year
  Sex: Female
  Weight: 61 kg

DRUGS (8)
  1. FOSAMAX [Suspect]
     Route: 048
     Dates: start: 20010521, end: 20060301
  2. ALENDRONATE SODIUM [Suspect]
     Indication: OSTEOPENIA
     Route: 048
     Dates: start: 20080328, end: 20090127
  3. FOSAMAX [Suspect]
     Indication: OSTEOPENIA
     Route: 048
     Dates: start: 20000803, end: 20010521
  4. FOSAMAX [Suspect]
     Indication: OSTEOPOROSIS
     Route: 048
     Dates: start: 20000803, end: 20010521
  5. SYNTHROID [Concomitant]
     Indication: HYPOTHYROIDISM
     Route: 065
     Dates: start: 19990101
  6. BONIVA [Suspect]
     Indication: OSTEOPOROSIS
     Route: 048
     Dates: start: 20060301, end: 20080328
  7. ALENDRONATE SODIUM [Suspect]
     Indication: OSTEOPOROSIS
     Route: 048
     Dates: start: 20080328, end: 20090127
  8. FOSAMAX [Suspect]
     Route: 048
     Dates: start: 20010521, end: 20060301

REACTIONS (34)
  - HAEMATOMA [None]
  - BREAST MASS [None]
  - ELECTROCARDIOGRAM ABNORMAL [None]
  - RHABDOMYOLYSIS [None]
  - INSOMNIA [None]
  - RESTLESS LEGS SYNDROME [None]
  - PHLEBOLITH [None]
  - FALL [None]
  - HYPERTENSION [None]
  - LOW TURNOVER OSTEOPATHY [None]
  - BREAST CALCIFICATIONS [None]
  - MONARTHRITIS [None]
  - INTERVERTEBRAL DISC PROTRUSION [None]
  - HYPERLIPIDAEMIA [None]
  - WITHDRAWAL BLEED [None]
  - HIATUS HERNIA [None]
  - BRONCHITIS [None]
  - UPPER RESPIRATORY TRACT INFECTION [None]
  - PANCREATIC DUCT DILATATION [None]
  - PATELLOFEMORAL PAIN SYNDROME [None]
  - STRESS FRACTURE [None]
  - JOINT INSTABILITY [None]
  - PAIN IN EXTREMITY [None]
  - OSTEOPOROSIS [None]
  - BLINDNESS [None]
  - HOT FLUSH [None]
  - SPINAL OSTEOARTHRITIS [None]
  - SLEEP DISORDER [None]
  - PALPITATIONS [None]
  - DIVERTICULUM [None]
  - FEMUR FRACTURE [None]
  - BREAST CANCER STAGE I [None]
  - NOCTURIA [None]
  - IRON DEFICIENCY ANAEMIA [None]
